FAERS Safety Report 15933805 (Version 1)
Quarter: 2019Q1

REPORT INFORMATION
  Report Type: Spontaneous
  Country: US (occurrence: US)
  Receive Date: 20190207
  Receipt Date: 20190207
  Transmission Date: 20190417
  Serious: No
  Sender: FDA-Public Use
  Company Number: US-SA-2019SA025320

PATIENT
  Age: 24 Year
  Sex: Male

DRUGS (2)
  1. LANTUS [Suspect]
     Active Substance: INSULIN GLARGINE
     Indication: TYPE 1 DIABETES MELLITUS
     Dosage: ROUTINE DOSE: 24 UNITS IN THE MORNING + 19 UNITS IN THE EVENING
  2. LANTUS [Suspect]
     Active Substance: INSULIN GLARGINE
     Dosage: DOUBLE OR TRIPLE DOSE
     Route: 065

REACTIONS (3)
  - Extra dose administered [Unknown]
  - Inappropriate schedule of product administration [Unknown]
  - Drug ineffective [Unknown]
